FAERS Safety Report 5410432-0 (Version None)
Quarter: 2007Q3

REPORT INFORMATION
  Report Type: 
  Country: None (occurrence: None)
  Receive Date: 20070810
  Receipt Date: 20070807
  Transmission Date: 20080115
  Serious: Yes (Hospitalization, Disabling)
  Sender: FDA-Public Use
  Company Number: PHEH2007US04394

PATIENT
  Age: 60 Year
  Sex: Female

DRUGS (4)
  1. TEKTURNA [Suspect]
     Indication: HYPERTENSION
     Dosage: 150 MG, QD
     Route: 048
     Dates: start: 20070404, end: 20070404
  2. VYTORIN [Concomitant]
     Indication: HYPERCHOLESTEROLAEMIA
     Dosage: 10/20 DAILY
     Route: 048
     Dates: start: 20070328
  3. SYNTHROID [Concomitant]
     Indication: HYPERTHYROIDISM
     Dosage: 50 UNK, QD
     Route: 048
     Dates: start: 20050419
  4. HORMONES [Concomitant]
     Indication: POSTMENOPAUSE
     Dosage: UNK, QD
     Route: 048
     Dates: start: 20050401

REACTIONS (4)
  - BLOOD PRESSURE INCREASED [None]
  - CEREBROVASCULAR ACCIDENT [None]
  - PARAESTHESIA [None]
  - VISUAL FIELD DEFECT [None]
